FAERS Safety Report 17128927 (Version 3)
Quarter: 2020Q4

REPORT INFORMATION
  Report Type: Spontaneous
  Country: IT (occurrence: IT)
  Receive Date: 20191209
  Receipt Date: 20201113
  Transmission Date: 20210113
  Serious: Yes (Other)
  Sender: FDA-Public Use
  Company Number: IT-MYLANLABS-2019M1120773

PATIENT
  Age: 21 Year
  Sex: Male

DRUGS (7)
  1. BUSPIRONE [Suspect]
     Active Substance: BUSPIRONE HYDROCHLORIDE
     Indication: MALE SEXUAL DYSFUNCTION
     Route: 065
  2. SERTRALINE [Suspect]
     Active Substance: SERTRALINE HYDROCHLORIDE
     Indication: DEPRESSION
     Dosage: 100 MILLIGRAM, QD
     Route: 065
  3. BUPROPION. [Concomitant]
     Active Substance: BUPROPION
     Indication: MALE SEXUAL DYSFUNCTION
     Dosage: 300 MILLIGRAM, QD
     Route: 065
  4. PRAMIPEXOLE. [Concomitant]
     Active Substance: PRAMIPEXOLE
     Indication: MALE SEXUAL DYSFUNCTION
     Dosage: 1 MILLIGRAM, QD
     Route: 065
  5. AMISULPRIDE [Suspect]
     Active Substance: AMISULPRIDE
     Indication: MALE SEXUAL DYSFUNCTION
     Route: 065
  6. SERTRALINE [Suspect]
     Active Substance: SERTRALINE HYDROCHLORIDE
     Dosage: DRUG DOSE WAS TAPERED, DISCONTINUED
     Route: 065
  7. ARIPIPRAZOLE. [Suspect]
     Active Substance: ARIPIPRAZOLE
     Indication: MALE SEXUAL DYSFUNCTION
     Route: 065

REACTIONS (6)
  - Withdrawal syndrome [Unknown]
  - Male sexual dysfunction [Unknown]
  - Drug ineffective [Unknown]
  - Major depression [Unknown]
  - Obsessive-compulsive disorder [Unknown]
  - Generalised anxiety disorder [Unknown]
